FAERS Safety Report 12380355 (Version 1)
Quarter: 2016Q2

REPORT INFORMATION
  Report Type: Spontaneous
  Country: US (occurrence: None)
  Receive Date: 20160517
  Receipt Date: 20160517
  Transmission Date: 20160815
  Serious: Yes (Other)
  Sender: FDA-Public Use
  Company Number: None

PATIENT
  Age: 46 Year
  Sex: Female
  Weight: 60.33 kg

DRUGS (7)
  1. XANAX [Concomitant]
     Active Substance: ALPRAZOLAM
  2. FIORICET [Concomitant]
     Active Substance: ACETAMINOPHEN\BUTALBITAL\CAFFEINE
  3. MULTI VITAMIN [Concomitant]
     Active Substance: VITAMINS
  4. VITAMIN D [Concomitant]
     Active Substance: CHOLECALCIFEROL
  5. TRANSDERM SCOP [Suspect]
     Active Substance: SCOPOLAMINE
     Indication: PROPHYLAXIS AGAINST MOTION SICKNESS
     Dosage: 2 PATCH(ES) 1 PATCH OVER 3 DAY APPLIED AS MEDICATED PATCH TO SKIN
     Route: 061
     Dates: start: 20160501, end: 20160508
  6. MAGNESIUM [Concomitant]
     Active Substance: MAGNESIUM
  7. MECLIZINE [Concomitant]
     Active Substance: MECLIZINE HYDROCHLORIDE

REACTIONS (4)
  - Aphasia [None]
  - Disturbance in attention [None]
  - Dizziness [None]
  - Drug withdrawal syndrome [None]

NARRATIVE: CASE EVENT DATE: 20160509
